FAERS Safety Report 15115157 (Version 2)
Quarter: 2018Q3

REPORT INFORMATION
  Report Type: Spontaneous
  Country: US (occurrence: US)
  Receive Date: 20180706
  Receipt Date: 20180813
  Transmission Date: 20181010
  Serious: No
  Sender: FDA-Public Use
  Company Number: US-ASTRAZENECA-2018SE83798

PATIENT
  Age: 60 Year
  Sex: Male
  Weight: 99.8 kg

DRUGS (7)
  1. PULMICORT FLEXHALER [Suspect]
     Active Substance: BUDESONIDE
     Indication: ASTHMA
     Route: 055
     Dates: start: 2016
  2. LUMIGEN EYE DROPS [Concomitant]
     Indication: GLAUCOMA
     Dosage: UNKNOWN
     Route: 047
  3. CRESTOR [Suspect]
     Active Substance: ROSUVASTATIN CALCIUM
     Indication: BLOOD CHOLESTEROL
     Route: 048
     Dates: start: 2016, end: 201701
  4. ATORVASTATIN [Concomitant]
     Active Substance: ATORVASTATIN
     Indication: BLOOD CHOLESTEROL
     Route: 048
     Dates: start: 201701
  5. ATENOLOL. [Suspect]
     Active Substance: ATENOLOL
     Indication: BLOOD PRESSURE ABNORMAL
     Dosage: 50/25 MG ONE DAILY
     Route: 048
     Dates: start: 2008
  6. LISINOPRIL. [Suspect]
     Active Substance: LISINOPRIL
     Indication: BLOOD PRESSURE ABNORMAL
     Route: 048
     Dates: start: 2008
  7. LEVOTHYROXINE. [Concomitant]
     Active Substance: LEVOTHYROXINE
     Indication: THYROID DISORDER
     Route: 048
     Dates: start: 2008

REACTIONS (8)
  - Wrong technique in device usage process [Unknown]
  - Device defective [Unknown]
  - Blood cholesterol abnormal [Unknown]
  - Eye disorder [Not Recovered/Not Resolved]
  - Off label use [Unknown]
  - Intentional product misuse [Unknown]
  - Neovascular age-related macular degeneration [Unknown]
  - Glaucoma [Unknown]

NARRATIVE: CASE EVENT DATE: 2016
